FAERS Safety Report 9895831 (Version 1)
Quarter: 2014Q1

REPORT INFORMATION
  Report Type: Spontaneous
  Country: US (occurrence: US)
  Receive Date: 20140213
  Receipt Date: 20140213
  Transmission Date: 20141002
  Serious: No
  Sender: FDA-Public Use
  Company Number: US-BRISTOL-MYERS SQUIBB COMPANY-17245259

PATIENT
  Age: 61 Year
  Sex: Female
  Weight: 70.29 kg

DRUGS (2)
  1. ABATACEPT SUBQ INJECTION 125MG/ML [Suspect]
     Indication: RHEUMATOID ARTHRITIS
     Dosage: LAST INJ:AROUND THE 14DEC2012
  2. PEPTO-BISMOL [Concomitant]

REACTIONS (1)
  - Lower respiratory tract infection [Recovering/Resolving]
